FAERS Safety Report 13360738 (Version 1)
Quarter: 2017Q1

REPORT INFORMATION
  Report Type: Spontaneous
  Country: US (occurrence: US)
  Receive Date: 20170322
  Receipt Date: 20170322
  Transmission Date: 20170429
  Serious: Yes (Hospitalization)
  Sender: FDA-Public Use
  Company Number: US-VIFOR (INTERNATIONAL) INC.-VIT-2017-02890

PATIENT
  Age: 74 Year
  Sex: Male

DRUGS (23)
  1. OMEGA-3 ACIDS [Concomitant]
     Active Substance: OMEGA-3 FATTY ACIDS
  2. CARVEDILOL. [Concomitant]
     Active Substance: CARVEDILOL
  3. ENTRESTO [Concomitant]
     Active Substance: SACUBITRIL\VALSARTAN
  4. FOLIC ACID. [Concomitant]
     Active Substance: FOLIC ACID
  5. LEVOTHYROXINE SODIUM. [Concomitant]
     Active Substance: LEVOTHYROXINE SODIUM
  6. ACETYLSALICYLIC ACID [Concomitant]
     Active Substance: ASPIRIN
  7. LIPITOR [Concomitant]
     Active Substance: ATORVASTATIN CALCIUM
  8. CYMBALTA [Concomitant]
     Active Substance: DULOXETINE HYDROCHLORIDE
  9. MURO 128 [Concomitant]
     Active Substance: SODIUM CHLORIDE
  10. NEURONTIN [Concomitant]
     Active Substance: GABAPENTIN
  11. TIMOLOL MALEATE. [Concomitant]
     Active Substance: TIMOLOL MALEATE
  12. ASCORBIC ACID. [Concomitant]
     Active Substance: ASCORBIC ACID
  13. FERROUS SULFATE. [Concomitant]
     Active Substance: FERROUS SULFATE
  14. KAYEXALATE [Concomitant]
     Active Substance: SODIUM POLYSTYRENE SULFONATE
  15. NOVOLOG [Concomitant]
     Active Substance: INSULIN ASPART
  16. ASCORBIC ACID. [Concomitant]
     Active Substance: ASCORBIC ACID
  17. GLYCERYL TRINITRATE [Concomitant]
     Active Substance: NITROGLYCERIN
  18. CYANOCOBALAMIN. [Concomitant]
     Active Substance: CYANOCOBALAMIN
  19. VOLTAREN [Concomitant]
     Active Substance: DICLOFENAC SODIUM
  20. XALATAN [Concomitant]
     Active Substance: LATANOPROST
  21. VELTASSA [Suspect]
     Active Substance: PATIROMER
     Indication: HYPERKALAEMIA
     Route: 048
     Dates: start: 20160528
  22. TORASEMIDE [Concomitant]
     Active Substance: TORSEMIDE
  23. TOUJEO [Concomitant]
     Active Substance: INSULIN GLARGINE

REACTIONS (1)
  - Haemorrhage [Unknown]

NARRATIVE: CASE EVENT DATE: 20170313
